FAERS Safety Report 6669050-9 (Version None)
Quarter: 2010Q2

REPORT INFORMATION
  Report Type: 
  Country: None (occurrence: None)
  Receive Date: 20100406
  Receipt Date: 20100330
  Transmission Date: 20101027
  Serious: Yes (Other)
  Sender: FDA-Public Use
  Company Number: US-SANOFI-AVENTIS-2010SA013005

PATIENT
  Age: 59 Year
  Sex: Female
  Weight: 95.2 kg

DRUGS (2)
  1. LANTUS [Suspect]
     Dosage: 1ST DOSE OF 80 UNITS AND 2ND DOSE OF 35 UNITS
     Route: 058
  2. SOLOSTAR [Suspect]

REACTIONS (2)
  - ARTHROSCOPIC SURGERY [None]
  - MOBILITY DECREASED [None]
